FAERS Safety Report 8341879-0 (Version None)
Quarter: 2012Q2

REPORT INFORMATION
  Report Type: 
  Country: None (occurrence: None)
  Receive Date: 20120503
  Receipt Date: 20120418
  Transmission Date: 20120825
  Serious: Yes (Hospitalization, Other)
  Sender: FDA-Public Use
  Company Number: JPI-P-012950

PATIENT
  Age: 59 Year
  Sex: Female
  Weight: 81.6475 kg

DRUGS (14)
  1. AZELAIC ACID [Concomitant]
  2. XYREM [Suspect]
     Indication: CATAPLEXY
     Dosage: SEE IMAGE
     Route: 048
     Dates: start: 20100101, end: 20101026
  3. XYREM [Suspect]
     Indication: SOMNOLENCE
     Dosage: SEE IMAGE
     Route: 048
     Dates: start: 20100101, end: 20101026
  4. XYREM [Suspect]
     Indication: CATAPLEXY
     Dosage: SEE IMAGE
     Route: 048
     Dates: start: 20101102
  5. XYREM [Suspect]
     Indication: SOMNOLENCE
     Dosage: SEE IMAGE
     Route: 048
     Dates: start: 20101102
  6. XYREM [Suspect]
     Indication: CATAPLEXY
     Dosage: SEE IMAGE
     Route: 048
     Dates: start: 20100101, end: 20100101
  7. XYREM [Suspect]
     Indication: SOMNOLENCE
     Dosage: SEE IMAGE
     Route: 048
     Dates: start: 20100101, end: 20100101
  8. XYREM [Suspect]
     Indication: CATAPLEXY
     Dosage: SEE IMAGE
     Route: 048
     Dates: start: 20100128, end: 20100208
  9. XYREM [Suspect]
     Indication: SOMNOLENCE
     Dosage: SEE IMAGE
     Route: 048
     Dates: start: 20100128, end: 20100208
  10. XYREM [Suspect]
     Indication: CATAPLEXY
     Dosage: SEE IMAGE
     Route: 048
     Dates: start: 20100209, end: 20100101
  11. XYREM [Suspect]
     Indication: SOMNOLENCE
     Dosage: SEE IMAGE
     Route: 048
     Dates: start: 20100209, end: 20100101
  12. OXYCODONE HCL [Concomitant]
  13. CLINDAMYCIN PHOSPHATE AND TRETINOIN [Concomitant]
  14. METHADONE HCL [Concomitant]

REACTIONS (22)
  - ANXIETY [None]
  - CONDITION AGGRAVATED [None]
  - STRESS [None]
  - BALANCE DISORDER [None]
  - INITIAL INSOMNIA [None]
  - MENTAL IMPAIRMENT [None]
  - GASTRITIS [None]
  - NAUSEA [None]
  - BLOOD URINE PRESENT [None]
  - SPINAL DISORDER [None]
  - DEPRESSION [None]
  - PANIC ATTACK [None]
  - ABNORMAL DREAMS [None]
  - WEIGHT DECREASED [None]
  - URINE ODOUR ABNORMAL [None]
  - BLADDER PAIN [None]
  - SOMNOLENCE [None]
  - DYSKINESIA [None]
  - SPEECH DISORDER [None]
  - SUICIDAL IDEATION [None]
  - BACK PAIN [None]
  - TREMOR [None]
